FAERS Safety Report 23713976 (Version 1)
Quarter: 2024Q2

REPORT INFORMATION
  Report Type: Other
  Country: FR (occurrence: FR)
  Receive Date: 20240405
  Receipt Date: 20240405
  Transmission Date: 20240715
  Serious: Yes (Other)
  Sender: FDA-Public Use
  Company Number: None

PATIENT

DRUGS (5)
  1. RUXOLITINIB [Suspect]
     Active Substance: RUXOLITINIB
     Indication: Graft versus host disease
     Dosage: 1 DOSAGE FORM, QD (1/J)
     Route: 048
     Dates: end: 20240120
  2. IRBESARTAN [Concomitant]
     Active Substance: IRBESARTAN
     Indication: Product used for unknown indication
     Dosage: UNK
     Route: 065
  3. ESTRIOL [Concomitant]
     Active Substance: ESTRIOL
     Indication: Product used for unknown indication
     Dosage: UNK
     Route: 065
  4. TAHOR [Concomitant]
     Active Substance: ATORVASTATIN CALCIUM
     Indication: Product used for unknown indication
     Dosage: UNK
     Route: 065
  5. CHOLECALCIFEROL [Concomitant]
     Active Substance: CHOLECALCIFEROL
     Indication: Product used for unknown indication
     Dosage: UNK (ORAL SOLUTION IN AMPOULE FORM)
     Route: 065

REACTIONS (2)
  - Graft versus host disease in skin [Recovered/Resolved]
  - Rebound effect [Recovered/Resolved]

NARRATIVE: CASE EVENT DATE: 20240213
